FAERS Safety Report 10469373 (Version 1)
Quarter: 2014Q3

REPORT INFORMATION
  Report Type: Spontaneous
  Country: GB (occurrence: GB)
  Receive Date: 20140923
  Receipt Date: 20140923
  Transmission Date: 20150326
  Serious: Yes (Other)
  Sender: FDA-Public Use
  Company Number: GB-GLENMARK GENERICS INC.-2014GMK011157

PATIENT
  Sex: Female

DRUGS (2)
  1. TOPIRAMATE. [Suspect]
     Active Substance: TOPIRAMATE
     Indication: MIGRAINE
     Dosage: UNK
     Route: 048
  2. TOPIRAMATE. [Suspect]
     Active Substance: TOPIRAMATE
     Indication: COMPLEX PARTIAL SEIZURES
     Dosage: 12.5 MG, QD
     Route: 048

REACTIONS (10)
  - Eye pain [Unknown]
  - Muscular weakness [Unknown]
  - Dry eye [Unknown]
  - Feeling hot [Unknown]
  - Headache [Unknown]
  - Malaise [Unknown]
  - Hypohidrosis [Unknown]
  - Off label use [Unknown]
  - Corneal abrasion [Unknown]
  - Palpitations [Unknown]
